FAERS Safety Report 19812596 (Version 1)
Quarter: 2021Q3

REPORT INFORMATION
  Report Type: Spontaneous
  Country: US (occurrence: US)
  Receive Date: 20210910
  Receipt Date: 20210910
  Transmission Date: 20211014
  Serious: Yes (Other)
  Sender: FDA-Public Use
  Company Number: US-AVET LIFESCIENCES LTD-2021-AVET-000011

PATIENT
  Age: 59 Year
  Sex: Female

DRUGS (3)
  1. METFORMIN [Suspect]
     Active Substance: METFORMIN HYDROCHLORIDE
     Dosage: 1000 MILLIGRAM, BID DAILY FOR THE REMAINING 4 DAYS
  2. METFORMIN [Suspect]
     Active Substance: METFORMIN HYDROCHLORIDE
     Indication: PLASMA CELL MYELOMA
     Dosage: 500 MILLIGRAM, BID DAILY FOR FIRST 3 DAYS
  3. RITONAVIR. [Suspect]
     Active Substance: RITONAVIR
     Indication: PLASMA CELL MYELOMA
     Dosage: 300 MILLIGRAM, BID DAILY FOR 2 WEEKS

REACTIONS (6)
  - Acute kidney injury [Unknown]
  - Lactic acidosis [Unknown]
  - Hypomagnesaemia [Unknown]
  - Off label use [Unknown]
  - Hyponatraemia [Unknown]
  - Disease progression [Unknown]
